FAERS Safety Report 18012833 (Version 1)
Quarter: 2020Q3

REPORT INFORMATION
  Report Type: Spontaneous
  Country: JP (occurrence: JP)
  Receive Date: 20200713
  Receipt Date: 20200713
  Transmission Date: 20201103
  Serious: Yes (Hospitalization)
  Sender: FDA-Public Use
  Company Number: NVSJ2020JP006560

PATIENT
  Sex: Female

DRUGS (2)
  1. STALEVO [Suspect]
     Active Substance: CARBIDOPA\ENTACAPONE\LEVODOPA
     Indication: PARKINSON^S DISEASE
     Dosage: 1DF:CARBIDOPA5MG,ENTACAPONE100MG,LEVODOPA50MG, TID
     Route: 048
  2. NEODOPASTON [Concomitant]
     Active Substance: CARBIDOPA\LEVODOPA
     Indication: PARKINSON^S DISEASE
     Dosage: 0.5 DF, PRN
     Route: 048

REACTIONS (10)
  - Tongue discolouration [Unknown]
  - Wrong technique in product usage process [Unknown]
  - Neck pain [Unknown]
  - Fall [Unknown]
  - Oral mucosal roughening [Unknown]
  - Chromaturia [Unknown]
  - Tongue rough [Unknown]
  - Dyskinesia [Not Recovered/Not Resolved]
  - Gingival swelling [Unknown]
  - Oral mucosal discolouration [Unknown]
